FAERS Safety Report 5156968-1 (Version None)
Quarter: 2006Q4

REPORT INFORMATION
  Report Type: 
  Country: None (occurrence: None)
  Receive Date: 20061124
  Receipt Date: 20061116
  Transmission Date: 20070319
  Serious: Yes (Other)
  Sender: FDA-Public Use
  Company Number: ES-ROCHE-471579

PATIENT
  Age: 41 Year
  Sex: Male

DRUGS (4)
  1. VALIUM [Suspect]
     Indication: DRUG USE FOR UNKNOWN INDICATION
     Route: 048
     Dates: start: 20050815, end: 20060830
  2. TRIZIVIR [Suspect]
     Indication: DRUG USE FOR UNKNOWN INDICATION
     Dosage: STRENGTH REPORTED AS 300/150/300 MG; DOSAGE REGIMEN REPORTED AS 2/DAY
     Route: 050
     Dates: start: 20050815, end: 20060830
  3. ZYPREXA [Suspect]
     Indication: DRUG USE FOR UNKNOWN INDICATION
     Route: 048
     Dates: start: 20050815, end: 20060830
  4. METHADONE HCL [Concomitant]
     Route: 048
     Dates: start: 20050815

REACTIONS (1)
  - PANCYTOPENIA [None]
